FAERS Safety Report 6286728-X (Version None)
Quarter: 2009Q3

REPORT INFORMATION
  Report Type: 
  Country: None (occurrence: None)
  Receive Date: 20090728
  Receipt Date: 20090721
  Transmission Date: 20100115
  Serious: Yes (Life-Threatening)
  Sender: FDA-Public Use
  Company Number: AR-JNJFOC-20090707646

PATIENT
  Age: 50 Year
  Sex: Male

DRUGS (1)
  1. CONCERTA [Suspect]
     Indication: DEPENDENCE
     Route: 065

REACTIONS (3)
  - OFF LABEL USE [None]
  - OVERDOSE [None]
  - SUICIDE ATTEMPT [None]
